FAERS Safety Report 8584951-2 (Version None)
Quarter: 2012Q3

REPORT INFORMATION
  Report Type: 
  Country: None (occurrence: None)
  Receive Date: 20120810
  Receipt Date: 20120801
  Transmission Date: 20120928
  Serious: Yes (Other)
  Sender: FDA-Public Use
  Company Number: US-ABBOTT-12P-163-0930557-00

PATIENT
  Sex: Male
  Weight: 104.87 kg

DRUGS (13)
  1. HUMIRA [Suspect]
     Indication: PSORIATIC ARTHROPATHY
     Route: 058
  2. NORVASC [Concomitant]
     Indication: PRODUCT USED FOR UNKNOWN INDICATION
     Route: 048
  3. PREDNISONE TAB [Concomitant]
     Indication: PRODUCT USED FOR UNKNOWN INDICATION
     Route: 051
  4. ZETIA [Concomitant]
     Indication: PRODUCT USED FOR UNKNOWN INDICATION
  5. NEURONTIN [Concomitant]
     Indication: PRODUCT USED FOR UNKNOWN INDICATION
     Route: 048
  6. ASPIRIN [Concomitant]
     Indication: PRODUCT USED FOR UNKNOWN INDICATION
  7. ALPRAZOLAM [Concomitant]
     Indication: PRODUCT USED FOR UNKNOWN INDICATION
  8. HYDROCHLOROTHIAZIDE [Concomitant]
     Indication: PRODUCT USED FOR UNKNOWN INDICATION
  9. ASPIRIN [Concomitant]
     Indication: PRODUCT USED FOR UNKNOWN INDICATION
     Route: 048
  10. LASIX [Concomitant]
     Indication: PRODUCT USED FOR UNKNOWN INDICATION
     Route: 048
  11. METOPROLOL TARTRATE [Concomitant]
     Indication: PRODUCT USED FOR UNKNOWN INDICATION
  12. NORCO [Concomitant]
     Indication: PRODUCT USED FOR UNKNOWN INDICATION
     Dosage: 10/500 - 1 TABLET
     Route: 048
  13. RAPAFLO [Concomitant]
     Indication: PRODUCT USED FOR UNKNOWN INDICATION
     Route: 048

REACTIONS (16)
  - SEPSIS [None]
  - URINARY TRACT INFECTION [None]
  - PSORIATIC ARTHROPATHY [None]
  - JOINT SWELLING [None]
  - ASTHENIA [None]
  - HAEMATURIA [None]
  - DISCOMFORT [None]
  - TACHYCARDIA [None]
  - ARTHRITIS [None]
  - BLOOD CREATININE INCREASED [None]
  - RHABDOMYOLYSIS [None]
  - BRONCHITIS [None]
  - SYNOVITIS [None]
  - INTERNATIONAL NORMALISED RATIO INCREASED [None]
  - PAIN [None]
  - PLATELET COUNT DECREASED [None]
